APPROVED DRUG PRODUCT: CELECOXIB
Active Ingredient: CELECOXIB
Strength: 50MG
Dosage Form/Route: CAPSULE;ORAL
Application: A208833 | Product #001
Applicant: AMNEAL PHARMACEUTICALS OF NEW YORK LLC
Approved: May 31, 2018 | RLD: No | RS: No | Type: DISCN